FAERS Safety Report 4450778-6 (Version None)
Quarter: 2004Q3

REPORT INFORMATION
  Report Type: 
  Country: None (occurrence: None)
  Receive Date: 20040913
  Receipt Date: 20040525
  Transmission Date: 20050211
  Serious: No
  Sender: FDA-Public Use
  Company Number: 2004-BP-04100BP(0)

PATIENT
  Age: 59 Year
  Sex: Female

DRUGS (5)
  1. SPIRIVA [Suspect]
     Indication: CHRONIC OBSTRUCTIVE AIRWAYS DISEASE
     Dosage: 18 MCG (18 MCG,OD), IH
     Dates: start: 20040517
  2. ATROVENT (IPRATOPRIUM BROMIDE) [Concomitant]
  3. EVISTA [Concomitant]
  4. CALCIUM (CALCIUM) [Concomitant]
  5. ADVAIR (SERETIDE MITE) [Concomitant]

REACTIONS (3)
  - GLOSSODYNIA [None]
  - ORAL DISCOMFORT [None]
  - RASH [None]
